FAERS Safety Report 10072613 (Version 1)
Quarter: 2014Q2

REPORT INFORMATION
  Report Type: Spontaneous
  Country: ES (occurrence: ES)
  Receive Date: 20140411
  Receipt Date: 20140411
  Transmission Date: 20141212
  Serious: Yes (Other)
  Sender: FDA-Public Use
  Company Number: ES-SA-2014SA040588

PATIENT
  Age: 80 Year
  Sex: Female

DRUGS (3)
  1. SEGURIL [Suspect]
     Indication: INFLAMMATION
     Route: 048
     Dates: end: 201403
  2. SEGURIL [Suspect]
     Indication: INFLAMMATION
     Dosage: DOSAGE: 250 MG/25 ML DROP BY DROP INFUSION FOR 48 HS
     Route: 042
     Dates: start: 20140325, end: 20140327
  3. SINTROM [Concomitant]
     Indication: ARRHYTHMIA
     Dates: start: 2004

REACTIONS (3)
  - Lower respiratory tract infection [Unknown]
  - Dyspnoea [Unknown]
  - Hypotension [Unknown]
